FAERS Safety Report 6980989-7 (Version None)
Quarter: 2010Q3

REPORT INFORMATION
  Report Type: 
  Country: None (occurrence: None)
  Receive Date: 20100914
  Receipt Date: 20100906
  Transmission Date: 20110219
  Serious: Yes (Hospitalization)
  Sender: FDA-Public Use
  Company Number: B0673724A

PATIENT
  Age: 80 Year
  Sex: Female

DRUGS (1)
  1. VALTREX [Suspect]
     Indication: PRODUCT USED FOR UNKNOWN INDICATION
     Route: 048
     Dates: start: 20100831, end: 20100901

REACTIONS (3)
  - CHEST DISCOMFORT [None]
  - DIZZINESS [None]
  - RENAL DISORDER [None]
